FAERS Safety Report 7396385-7 (Version None)
Quarter: 2011Q2

REPORT INFORMATION
  Report Type: 
  Country: None (occurrence: None)
  Receive Date: 20110406
  Receipt Date: 20110310
  Transmission Date: 20111010
  Serious: No
  Sender: FDA-Public Use
  Company Number: US-B.I. PHARMACEUTICALS,INC./RIDGEFIELD-2011-BP-07670BP

PATIENT
  Age: 68 Year
  Sex: Male

DRUGS (7)
  1. PREDNISONE [Concomitant]
     Indication: LOWER RESPIRATORY TRACT INFECTION
     Dates: start: 20101001
  2. SOTALOL [Concomitant]
     Indication: ATRIAL FIBRILLATION
  3. OMEPRAZOLE [Concomitant]
     Indication: GASTROOESOPHAGEAL REFLUX DISEASE
     Dates: end: 20110309
  4. PRADAXA [Suspect]
     Indication: ATRIAL FIBRILLATION
     Dosage: 300 MG
     Route: 048
     Dates: start: 20110309
  5. DILTIAZEM HCL [Concomitant]
     Indication: CARDIOVASCULAR EVENT PROPHYLAXIS
  6. DIOXIN [Concomitant]
     Indication: ATRIAL FIBRILLATION
  7. AMBIEN [Concomitant]
     Indication: SLEEP DISORDER
     Dates: start: 20110201

REACTIONS (1)
  - ERYTHEMA [None]
